FAERS Safety Report 5903592-6 (Version None)
Quarter: 2008Q3

REPORT INFORMATION
  Report Type: 
  Country: None (occurrence: None)
  Receive Date: 20080930
  Receipt Date: 20080918
  Transmission Date: 20090109
  Serious: Yes (Hospitalization)
  Sender: FDA-Public Use
  Company Number: JP-PFIZER INC-2008077809

PATIENT
  Sex: Female
  Weight: 40 kg

DRUGS (10)
  1. CHANTIX [Suspect]
     Indication: NICOTINE DEPENDENCE
     Route: 048
     Dates: start: 20080728
  2. ADONA [Concomitant]
     Route: 048
  3. PREDONINE [Concomitant]
     Route: 048
  4. FAMOTIDINE [Concomitant]
     Route: 054
  5. NIFEDIPINE [Concomitant]
     Route: 048
  6. CRESTOR [Concomitant]
     Route: 048
  7. RIMATIL [Concomitant]
     Route: 048
  8. ACETYLSALICYLIC ACID SRT [Concomitant]
     Route: 048
  9. LENDORMIN [Concomitant]
     Route: 048
  10. DEPAS [Concomitant]
     Route: 048

REACTIONS (4)
  - AFFECT LABILITY [None]
  - DIZZINESS POSTURAL [None]
  - NAUSEA [None]
  - PALPITATIONS [None]
